FAERS Safety Report 12216109 (Version 2)
Quarter: 2016Q2

REPORT INFORMATION
  Report Type: Report from Study
  Country: AU (occurrence: AU)
  Receive Date: 20160329
  Receipt Date: 20160414
  Transmission Date: 20160815
  Serious: Yes (Death, Hospitalization)
  Sender: FDA-Public Use
  Company Number: AU-ROCHE-1721123

PATIENT
  Age: 80 Year
  Sex: Male

DRUGS (7)
  1. NEXIUM [Concomitant]
     Active Substance: ESOMEPRAZOLE MAGNESIUM
  2. EYLEA [Concomitant]
     Active Substance: AFLIBERCEPT
     Route: 065
     Dates: start: 20140708, end: 20140708
  3. RANIBIZUMAB [Suspect]
     Active Substance: RANIBIZUMAB
     Indication: NEOVASCULAR AGE-RELATED MACULAR DEGENERATION
     Dosage: RIGHT EYE.
     Route: 050
     Dates: start: 20091215
  4. PLAVIX [Concomitant]
     Active Substance: CLOPIDOGREL BISULFATE
  5. RAMIPRIL. [Concomitant]
     Active Substance: RAMIPRIL
  6. RANIBIZUMAB [Suspect]
     Active Substance: RANIBIZUMAB
     Dosage: RIGHT EYE, DATE OF LAST DOSE PRIOR TO SAE : 24/JUL/2014
     Route: 050
     Dates: start: 20140724
  7. EYLEA [Concomitant]
     Active Substance: AFLIBERCEPT
     Route: 065
     Dates: start: 20130830, end: 20140708

REACTIONS (7)
  - Hypotension [Unknown]
  - Urine output decreased [Unknown]
  - Fall [Unknown]
  - Oliguria [Unknown]
  - Loss of consciousness [Unknown]
  - Cardiac arrest [Fatal]
  - Hip fracture [Unknown]

NARRATIVE: CASE EVENT DATE: 20140804
